FAERS Safety Report 11378982 (Version 1)
Quarter: 2015Q3

REPORT INFORMATION
  Report Type: Spontaneous
  Country: US (occurrence: US)
  Receive Date: 20150811
  Receipt Date: 20150811
  Transmission Date: 20151125
  Serious: No
  Sender: FDA-Public Use
  Company Number: US-ELI_LILLY_AND_COMPANY-US200806004897

PATIENT
  Sex: Male

DRUGS (2)
  1. CIALIS [Suspect]
     Active Substance: TADALAFIL
     Dosage: 20 MG, UNK
  2. ADVIL [Concomitant]
     Active Substance: IBUPROFEN
     Indication: MYALGIA

REACTIONS (4)
  - Prostatomegaly [Unknown]
  - Anorectal disorder [Recovered/Resolved]
  - Micturition urgency [Unknown]
  - Urinary hesitation [Recovered/Resolved]
